FAERS Safety Report 9321738 (Version 1)
Quarter: 2013Q2

REPORT INFORMATION
  Report Type: Spontaneous
  Country: GB (occurrence: GB)
  Receive Date: 20130531
  Receipt Date: 20130531
  Transmission Date: 20140414
  Serious: Yes (Hospitalization)
  Sender: FDA-Public Use
  Company Number: GB-MYLANLABS-2013S1010828

PATIENT
  Age: 80 Year
  Sex: 0

DRUGS (1)
  1. RISPERIDONE [Suspect]
     Indication: PRODUCT USED FOR UNKNOWN INDICATION
     Route: 048
     Dates: start: 20130426

REACTIONS (8)
  - Blister [Unknown]
  - Gait disturbance [Unknown]
  - Rash pruritic [Unknown]
  - Rash [Recovering/Resolving]
  - Scab [Unknown]
  - Skin lesion [Unknown]
  - Swelling [Unknown]
  - Wound secretion [Unknown]
